FAERS Safety Report 9618961 (Version 1)
Quarter: 2013Q4

REPORT INFORMATION
  Report Type: Spontaneous
  Country: FR (occurrence: FR)
  Receive Date: 20131014
  Receipt Date: 20131014
  Transmission Date: 20140711
  Serious: Yes (Hospitalization)
  Sender: FDA-Public Use
  Company Number: FR-SA-2013SA099290

PATIENT
  Age: 69 Year
  Sex: Female

DRUGS (2)
  1. RIFATER [Suspect]
     Indication: PRODUCT USED FOR UNKNOWN INDICATION
     Route: 048
     Dates: start: 20130813, end: 20130917
  2. CORTANCYL [Concomitant]
     Route: 048
     Dates: start: 20130813, end: 20130917

REACTIONS (1)
  - Hepatocellular injury [Recovering/Resolving]
